FAERS Safety Report 4607677-6 (Version None)
Quarter: 2005Q1

REPORT INFORMATION
  Report Type: 
  Country: None (occurrence: None)
  Receive Date: 20050309
  Receipt Date: 20050222
  Transmission Date: 20050727
  Serious: Yes (Death)
  Sender: FDA-Public Use
  Company Number: DE-2005-002686

PATIENT
  Age: 63 Year
  Sex: Male

DRUGS (1)
  1. CAMPATH [Suspect]
     Indication: CHRONIC LYMPHOCYTIC LEUKAEMIA
     Dates: start: 20041001, end: 20041201

REACTIONS (2)
  - CARDIAC FAILURE [None]
  - ENCEPHALITIS CYTOMEGALOVIRUS [None]
